FAERS Safety Report 8382105-6 (Version None)
Quarter: 2012Q2

REPORT INFORMATION
  Report Type: 
  Country: None (occurrence: None)
  Receive Date: 20120507
  Receipt Date: 20120424
  Transmission Date: 20120825
  Serious: Yes (Other)
  Sender: FDA-Public Use
  Company Number: 2012PROUSA01304

PATIENT
  Age: 76 Year
  Sex: Male
  Weight: 83.9 kg

DRUGS (22)
  1. LOVAZA [Concomitant]
  2. NAPROXEN (ALEVE) [Concomitant]
  3. CIPRO [Concomitant]
  4. ARICEPT [Concomitant]
  5. LECITHIN (LECITHIN) [Concomitant]
  6. XANAX [Concomitant]
  7. ASPIRIN [Concomitant]
  8. CALCIUM CARBONATE [Concomitant]
  9. OMEPRAZOLE [Concomitant]
  10. CHOLECALCIFEROL (COLECALCIFEROL) [Concomitant]
  11. CITALOPRAM HYDROBROMIDE [Concomitant]
  12. PREDNISONE TAB [Concomitant]
  13. KETOCONAZOLE [Concomitant]
  14. LOVASTATIN [Concomitant]
  15. METOPROLOL SUCCINATE [Concomitant]
  16. ZANTAC 150 MAXIMUM STRENGTH (RANITIDINE HYDROCHLORIDE) [Concomitant]
  17. IBUPROFEN [Concomitant]
  18. TOCOPHEROL (TOCOPHEROL) [Concomitant]
  19. PROVENGE [Suspect]
     Indication: PROSTATE CANCER METASTATIC
     Dosage: 250 ML, SINGLE, INTRAVENOUS
     Route: 042
     Dates: start: 20120412, end: 20120412
  20. CASODEX [Concomitant]
  21. TYLENOL PM (DIPHENHYDRAMINE HYDROCHLORIDE, PARACETAMOL) [Concomitant]
  22. SOMETA (ZOLEDRONIC ACID) [Concomitant]

REACTIONS (1)
  - DEEP VEIN THROMBOSIS [None]
